FAERS Safety Report 14391996 (Version 1)
Quarter: 2018Q1

REPORT INFORMATION
  Report Type: Spontaneous
  Country: US (occurrence: US)
  Receive Date: 20180116
  Receipt Date: 20180116
  Transmission Date: 20180509
  Serious: No
  Sender: FDA-Public Use
  Company Number: US-GLAXOSMITHKLINE-US2018005125

PATIENT
  Age: 71 Year
  Sex: Female

DRUGS (2)
  1. BREO ELLIPTA [Suspect]
     Active Substance: FLUTICASONE FUROATE\VILANTEROL TRIFENATATE
     Indication: ASTHMA
  2. BREO ELLIPTA [Suspect]
     Active Substance: FLUTICASONE FUROATE\VILANTEROL TRIFENATATE
     Indication: LOWER RESPIRATORY TRACT CONGESTION
     Dosage: 1 PUFF(S), QD
     Route: 055
     Dates: start: 20180111

REACTIONS (4)
  - Drug ineffective for unapproved indication [Unknown]
  - Wrong technique in device usage process [Unknown]
  - Off label use [Unknown]
  - Product use in unapproved indication [Unknown]

NARRATIVE: CASE EVENT DATE: 20180111
